FAERS Safety Report 23548097 (Version 2)
Quarter: 2024Q2

REPORT INFORMATION
  Report Type: Spontaneous
  Country: FI (occurrence: FI)
  Receive Date: 20240221
  Receipt Date: 20240408
  Transmission Date: 20240715
  Serious: Yes (Hospitalization, Other)
  Sender: FDA-Public Use
  Company Number: FI-EMA-DD-20240205-7482711-123537

PATIENT
  Age: 58 Year
  Sex: Male

DRUGS (8)
  1. QUETIAPINE [Interacting]
     Active Substance: QUETIAPINE
     Indication: Bipolar disorder
     Dosage: 400 MG, QD
  2. CAPECITABINE [Interacting]
     Active Substance: CAPECITABINE
     Indication: Metastases to lymph nodes
  3. CAPECITABINE [Interacting]
     Active Substance: CAPECITABINE
     Indication: Adjuvant therapy
  4. CAPECITABINE [Interacting]
     Active Substance: CAPECITABINE
     Indication: Rectal cancer metastatic
  5. VALPROIC ACID [Interacting]
     Active Substance: VALPROIC ACID
     Indication: Bipolar disorder
     Dosage: 1800 MG, QD
  6. OXALIPLATIN [Interacting]
     Active Substance: OXALIPLATIN
     Indication: Rectal cancer metastatic
  7. OXALIPLATIN [Interacting]
     Active Substance: OXALIPLATIN
     Indication: Metastases to lymph nodes
  8. OXALIPLATIN [Interacting]
     Active Substance: OXALIPLATIN
     Indication: Adjuvant therapy

REACTIONS (8)
  - Diplopia [Recovered/Resolved]
  - Fatigue [Recovered/Resolved]
  - Dysarthria [Recovered/Resolved]
  - Balance disorder [Recovered/Resolved]
  - Tremor [Recovered/Resolved]
  - Toxicity to various agents [Recovered/Resolved]
  - Blood albumin decreased [Unknown]
  - Drug interaction [Unknown]
